FAERS Safety Report 23243873 (Version 1)
Quarter: 2023Q4

REPORT INFORMATION
  Report Type: Spontaneous
  Country: US (occurrence: US)
  Receive Date: 20231130
  Receipt Date: 20231130
  Transmission Date: 20240109
  Serious: No
  Sender: FDA-Public Use
  Company Number: US-BRISTOL-MYERS SQUIBB COMPANY-2023-160537

PATIENT

DRUGS (16)
  1. TRIAMCINOLONE ACETONIDE [Suspect]
     Active Substance: TRIAMCINOLONE ACETONIDE
     Indication: Urticaria
     Dosage: 540 MILLIGRAMS JAR A CREAM
  2. TRIAMCINOLONE ACETONIDE [Suspect]
     Active Substance: TRIAMCINOLONE ACETONIDE
     Indication: Pruritus
  3. PREGABALIN [Concomitant]
     Active Substance: PREGABALIN
     Indication: Urticaria
  4. PREGABALIN [Concomitant]
     Active Substance: PREGABALIN
     Indication: Pruritus
  5. DOXEPIN [Concomitant]
     Active Substance: DOXEPIN
     Indication: Urticaria
  6. DOXEPIN [Concomitant]
     Active Substance: DOXEPIN
     Indication: Pruritus
  7. AMOXICILLIN [Concomitant]
     Active Substance: AMOXICILLIN
     Indication: Urticaria
  8. AMOXICILLIN [Concomitant]
     Active Substance: AMOXICILLIN
     Indication: Pruritus
  9. METRONIDAZOLE [Concomitant]
     Active Substance: METRONIDAZOLE
     Indication: Urticaria
  10. METRONIDAZOLE [Concomitant]
     Active Substance: METRONIDAZOLE
     Indication: Pruritus
  11. XOLAIR [Concomitant]
     Active Substance: OMALIZUMAB
     Indication: Pruritus
  12. XOLAIR [Concomitant]
     Active Substance: OMALIZUMAB
     Indication: Urticaria
  13. DECADRON [Concomitant]
     Active Substance: DEXAMETHASONE
     Indication: Urticaria
  14. DECADRON [Concomitant]
     Active Substance: DEXAMETHASONE
     Indication: Pruritus
  15. PREDNISONE [Concomitant]
     Active Substance: PREDNISONE
     Indication: Urticaria
  16. PREDNISONE [Concomitant]
     Active Substance: PREDNISONE
     Indication: Pruritus

REACTIONS (1)
  - Drug ineffective [Unknown]
